FAERS Safety Report 8606366-0 (Version None)
Quarter: 2012Q3

REPORT INFORMATION
  Report Type: 
  Country: None (occurrence: None)
  Receive Date: 20120820
  Receipt Date: 20120813
  Transmission Date: 20120928
  Serious: Yes (Other)
  Sender: FDA-Public Use
  Company Number: US-MYLANLABS-2012S1008085

PATIENT
  Age: 27 Year
  Sex: Female
  Weight: 104.33 kg

DRUGS (1)
  1. AMNESTEEM [Suspect]
     Route: 048
     Dates: start: 20111114, end: 20120115

REACTIONS (3)
  - VOMITING [None]
  - NAUSEA [None]
  - MATERNAL EXPOSURE BEFORE PREGNANCY [None]
